FAERS Safety Report 23971449 (Version 2)
Quarter: 2024Q3

REPORT INFORMATION
  Report Type: Spontaneous
  Country: US (occurrence: US)
  Receive Date: 20240613
  Receipt Date: 20240702
  Transmission Date: 20241017
  Serious: No
  Sender: GLAXOSMITHKLINE
  Company Number: US-GSK-US2024AMR070147

PATIENT
  Age: 19 Year
  Sex: Male

DRUGS (1)
  1. ALBUTEROL SULFATE [Suspect]
     Active Substance: ALBUTEROL SULFATE
     Indication: Product used for unknown indication
     Dosage: 90 UG, 18 G/200 METERED

REACTIONS (5)
  - Product storage error [Unknown]
  - Product dose omission issue [Unknown]
  - Drug ineffective [Unknown]
  - Expired product administered [Unknown]
  - Product complaint [Unknown]
